FAERS Safety Report 7438250-2 (Version None)
Quarter: 2011Q2

REPORT INFORMATION
  Report Type: 
  Country: None (occurrence: None)
  Receive Date: 20110421
  Receipt Date: 20110421
  Transmission Date: 20111010
  Serious: No
  Sender: FDA-Public Use
  Company Number: None

PATIENT
  Sex: Male
  Weight: 105.6881 kg

DRUGS (1)
  1. VASOTEC [Suspect]
     Dosage: VASOTEC 20 MG QD PO
     Route: 048

REACTIONS (2)
  - ABDOMINAL DISCOMFORT [None]
  - PRODUCT QUALITY ISSUE [None]
